FAERS Safety Report 11431860 (Version 4)
Quarter: 2015Q4

REPORT INFORMATION
  Report Type: Report from Study
  Country: TR (occurrence: TR)
  Receive Date: 20150828
  Receipt Date: 20151127
  Transmission Date: 20160304
  Serious: Yes (Other)
  Sender: FDA-Public Use
  Company Number: TR-ABBVIE-15K-161-1451625-00

PATIENT
  Age: 44 Year
  Sex: Female
  Weight: 87 kg

DRUGS (2)
  1. HUMIRA [Suspect]
     Active Substance: ADALIMUMAB
     Indication: RHEUMATOID ARTHRITIS
     Route: 058
     Dates: start: 20150130, end: 20150824
  2. HUMIRA [Suspect]
     Active Substance: ADALIMUMAB
     Route: 058
     Dates: start: 20150829

REACTIONS (2)
  - Menstruation irregular [Recovered/Resolved]
  - Endometrial hyperplasia [Recovered/Resolved]

NARRATIVE: CASE EVENT DATE: 2015
